FAERS Safety Report 9093487 (Version 3)
Quarter: 2014Q3

REPORT INFORMATION
  Report Type: Spontaneous
  Country: US (occurrence: US)
  Receive Date: 20130218
  Receipt Date: 20140714
  Transmission Date: 20150326
  Serious: Yes (Hospitalization)
  Sender: FDA-Public Use
  Company Number: US-009507513-1302USA006711

PATIENT
  Sex: Female
  Weight: 94.33 kg

DRUGS (1)
  1. NUVARING [Suspect]
     Active Substance: ETHINYL ESTRADIOL\ETONOGESTREL
     Indication: CONTRACEPTION
     Dosage: UNK
     Route: 067
     Dates: start: 201105, end: 20110607

REACTIONS (6)
  - Arthropod bite [Unknown]
  - Deep vein thrombosis [Unknown]
  - Incorrect drug administration duration [Unknown]
  - Coagulopathy [Unknown]
  - Maternal exposure before pregnancy [Unknown]
  - Pain in extremity [Unknown]

NARRATIVE: CASE EVENT DATE: 2011
